FAERS Safety Report 13172053 (Version 2)
Quarter: 2017Q1

REPORT INFORMATION
  Report Type: Spontaneous
  Country: US (occurrence: US)
  Receive Date: 20170201
  Receipt Date: 20170207
  Transmission Date: 20170428
  Serious: Yes (Death, Hospitalization)
  Sender: FDA-Public Use
  Company Number: US-AUROBINDO-AUR-APL-2017-28144

PATIENT
  Age: 59 Year
  Sex: Male

DRUGS (4)
  1. CIPROFLOXACIN. [Concomitant]
     Active Substance: CIPROFLOXACIN
     Indication: ESCHERICHIA INFECTION
     Route: 065
  2. CEFEPIME [Concomitant]
     Active Substance: CEFEPIME HYDROCHLORIDE
     Indication: URINARY TRACT INFECTION
     Route: 065
  3. PREDNISONE. [Suspect]
     Active Substance: PREDNISONE
     Indication: IMMUNOSUPPRESSANT DRUG THERAPY
     Dosage: 5 MG, DAILY
     Route: 065
  4. VALGANCICLOVIR. [Concomitant]
     Active Substance: VALGANCICLOVIR
     Indication: CYTOMEGALOVIRUS VIRAEMIA
     Route: 065

REACTIONS (10)
  - Unresponsive to stimuli [Unknown]
  - Hypotension [Unknown]
  - Infection [Fatal]
  - Leukocytosis [Unknown]
  - Generalised oedema [Unknown]
  - Abdominal distension [Unknown]
  - Blood lactic acid increased [Unknown]
  - Mental status changes [Unknown]
  - Pulse absent [Unknown]
  - Pulmonary oedema [Unknown]
